FAERS Safety Report 5889538-8 (Version None)
Quarter: 2008Q3

REPORT INFORMATION
  Report Type: 
  Country: None (occurrence: None)
  Receive Date: 20080919
  Receipt Date: 20080916
  Transmission Date: 20090109
  Serious: Yes (Congenital Anomaly)
  Sender: FDA-Public Use
  Company Number: A0651810A

PATIENT
  Sex: Male
  Weight: 4 kg

DRUGS (3)
  1. LAMOTRIGINE [Suspect]
     Dosage: 300MG PER DAY
  2. VITAMIN AND MINERAL PRENATAL SUPPLEMENT W/ FOLIC ACID CAP [Concomitant]
     Dosage: 1TAB PER DAY
  3. FOLIC ACID [Concomitant]
     Dosage: 4MG PER DAY

REACTIONS (2)
  - CRYPTORCHISM [None]
  - DRUG EXPOSURE DURING PREGNANCY [None]
